FAERS Safety Report 7071350-8 (Version None)
Quarter: 2010Q4

REPORT INFORMATION
  Report Type: 
  Country: None (occurrence: None)
  Receive Date: 20101020
  Receipt Date: 20101004
  Transmission Date: 20110411
  Serious: Yes (Disabling, Other)
  Sender: FDA-Public Use
  Company Number: ACO_02543_2010

PATIENT
  Sex: Female
  Weight: 45.3597 kg

DRUGS (2)
  1. AMPYRA [Suspect]
     Indication: GAIT DISTURBANCE
     Dosage: (2 DF, 1 TABLET EVERY 12 HOURS ORAL)
     Route: 048
     Dates: start: 20101002
  2. COPAXONE [Concomitant]

REACTIONS (2)
  - ABASIA [None]
  - CONDITION AGGRAVATED [None]
